FAERS Safety Report 8043040-6 (Version None)
Quarter: 2012Q1

REPORT INFORMATION
  Report Type: 
  Country: None (occurrence: None)
  Receive Date: 20120112
  Receipt Date: 20120107
  Transmission Date: 20120608
  Serious: Yes (Other)
  Sender: FDA-Public Use
  Company Number: PHHY2011CA88909

PATIENT
  Sex: Female

DRUGS (1)
  1. GILENYA [Suspect]
     Indication: RELAPSING-REMITTING MULTIPLE SCLEROSIS
     Dosage: 0.5 MG, QD
     Route: 048
     Dates: start: 20110818

REACTIONS (7)
  - UTERINE LEIOMYOMA [None]
  - HEPATOMEGALY [None]
  - FATIGUE [None]
  - HEPATIC CYST [None]
  - SKIN DISCOLOURATION [None]
  - HEART RATE DECREASED [None]
  - RENAL CYST [None]
